FAERS Safety Report 8350287-8 (Version None)
Quarter: 2012Q2

REPORT INFORMATION
  Report Type: 
  Country: None (occurrence: None)
  Receive Date: 20120510
  Receipt Date: 20120504
  Transmission Date: 20120825
  Serious: Yes (Hospitalization)
  Sender: FDA-Public Use
  Company Number: CA-PFIZER INC-2012111890

PATIENT
  Age: 61 Year
  Sex: Male
  Weight: 76 kg

DRUGS (1)
  1. CELEBREX [Suspect]
     Indication: ARTHRALGIA
     Dosage: 200 MG, 1X/DAY
     Route: 048
     Dates: end: 20110626

REACTIONS (5)
  - PERIPHERAL COLDNESS [None]
  - HEMIPARESIS [None]
  - CEREBROVASCULAR DISORDER [None]
  - DIZZINESS [None]
  - HYPOAESTHESIA [None]
